FAERS Safety Report 5219583-7 (Version None)
Quarter: 2007Q1

REPORT INFORMATION
  Report Type: 
  Country: None (occurrence: None)
  Receive Date: 20070125
  Receipt Date: 20070111
  Transmission Date: 20070707
  Serious: Yes (Hospitalization)
  Sender: FDA-Public Use
  Company Number: ES-SHR-ES-2005-015481

PATIENT
  Age: 40 Year
  Sex: Female

DRUGS (4)
  1. BETASERON [Suspect]
     Dosage: 8 MIU, EVERY 2D
     Route: 058
     Dates: start: 20050131
  2. DALACIN [Concomitant]
     Dosage: 300 UNK, EVERY 8H FOR 6 DAYS
  3. DACORTIN [Concomitant]
     Indication: CELLULITIS PHARYNGEAL
     Dosage: 30 MG, EVERY 2D
     Route: 048
     Dates: start: 20050625, end: 20050627
  4. EMEPROTON [Concomitant]
     Dosage: 1 TAB(S), 1X/DAY

REACTIONS (1)
  - CELLULITIS PHARYNGEAL [None]
